FAERS Safety Report 9136865 (Version 1)
Quarter: 2013Q1

REPORT INFORMATION
  Report Type: Spontaneous
  Country: US (occurrence: US)
  Receive Date: 20130304
  Receipt Date: 20130304
  Transmission Date: 20140127
  Serious: No
  Sender: FDA-Public Use
  Company Number: US-ABBOTT-12P-163-0912973-00

PATIENT
  Sex: Male

DRUGS (3)
  1. ANDROGEL [Suspect]
     Indication: BLOOD TESTOSTERONE DECREASED
     Dosage: 3 PACKETS DAILY
     Dates: start: 2008, end: 201108
  2. ANDROGEL 1.62% [Suspect]
     Indication: BLOOD TESTOSTERONE DECREASED
     Dosage: PUMP  2 PUMPS EACH SHOULDER DAILY
     Dates: start: 201108
  3. CABERGOLINE [Concomitant]
     Indication: PITUITARY TUMOUR

REACTIONS (3)
  - Blood thyroid stimulating hormone abnormal [Not Recovered/Not Resolved]
  - Blood testosterone decreased [Unknown]
  - Malaise [Not Recovered/Not Resolved]
